FAERS Safety Report 9075767 (Version 1)
Quarter: 2013Q1

REPORT INFORMATION
  Report Type: Spontaneous
  Country: PR (occurrence: PR)
  Receive Date: 20130131
  Receipt Date: 20130131
  Transmission Date: 20140127
  Serious: No
  Sender: FDA-Public Use
  Company Number: PR-ABBOTT-12P-131-1011865-00

PATIENT
  Sex: Female
  Weight: 77.18 kg

DRUGS (6)
  1. HUMIRA [Suspect]
     Indication: RHEUMATOID ARTHRITIS
     Route: 058
     Dates: end: 20120117
  2. HUMIRA [Suspect]
     Route: 058
     Dates: start: 20120207
  3. HUMIRA [Suspect]
     Route: 058
     Dates: start: 20120228
  4. LISINOPRIL [Concomitant]
     Indication: HYPERTENSION
     Route: 048
  5. NORVASC [Concomitant]
     Indication: HYPERTENSION
     Route: 048
  6. FOLIC ACID [Concomitant]
     Indication: PRODUCT USED FOR UNKNOWN INDICATION
     Route: 048

REACTIONS (1)
  - Feeling abnormal [Unknown]
